FAERS Safety Report 15279444 (Version 1)
Quarter: 2018Q3

REPORT INFORMATION
  Report Type: Report from Study
  Country: PT (occurrence: PT)
  Receive Date: 20180815
  Receipt Date: 20180815
  Transmission Date: 20181010
  Serious: Yes (Death, Hospitalization, Other)
  Sender: FDA-Public Use
  Company Number: PT-ELI_LILLY_AND_COMPANY-PT201808003975

PATIENT
  Age: 88 Year
  Sex: Male
  Weight: 103 kg

DRUGS (9)
  1. TAMSULOSIN HYDROCHLORIDE. [Concomitant]
     Active Substance: TAMSULOSIN HYDROCHLORIDE
     Indication: PRODUCT USED FOR UNKNOWN INDICATION
     Dosage: UNK UNK, UNKNOWN (0.4 UNITS UNK)
     Route: 065
  2. CEFUROXIME. [Concomitant]
     Active Substance: CEFUROXIME
     Indication: URINARY TRACT INFECTION
     Dosage: UNK UNK, UNKNOWN
     Route: 065
  3. INSULIN, LISPRO [Suspect]
     Active Substance: INSULIN LISPRO
     Indication: PRODUCT USED FOR UNKNOWN INDICATION
     Dosage: 20 IU, EACH MORNING
     Route: 065
  4. ATORVASTATIN [Concomitant]
     Active Substance: ATORVASTATIN
     Indication: PRODUCT USED FOR UNKNOWN INDICATION
     Dosage: UNK UNK, UNKNOWN (20 UNITS UNK)
     Route: 065
  5. INSULIN, LISPRO [Suspect]
     Active Substance: INSULIN LISPRO
     Dosage: 24 IU, EACH EVENING
     Route: 065
  6. ACETYLSALICYLIC ACID [Concomitant]
     Active Substance: ASPIRIN
     Indication: PRODUCT USED FOR UNKNOWN INDICATION
     Dosage: UNK UNK, UNKNOWN
     Route: 065
  7. SITAGLIPTIN PHOSPHATE [Suspect]
     Active Substance: SITAGLIPTIN PHOSPHATE
     Indication: TYPE 2 DIABETES MELLITUS
     Dosage: 100 MG, UNKNOWN
     Route: 048
     Dates: end: 20180322
  8. AMOXICILLIN AND CLAVULANATE POTASSIUM [Concomitant]
     Active Substance: AMOXICILLIN\CLAVULANATE POTASSIUM
     Indication: URINARY TRACT INFECTION
     Dosage: UNK UNK, UNKNOWN
     Route: 065
  9. TRIPLIXAM [Concomitant]
     Active Substance: AMLODIPINE BESYLATE\INDAPAMIDE\PERINDOPRIL ARGININE
     Indication: PRODUCT USED FOR UNKNOWN INDICATION
     Dosage: UNK, UNKNOWN
     Route: 065

REACTIONS (13)
  - Bacteraemia [Fatal]
  - Anaemia [Fatal]
  - Bacterial pyelonephritis [Fatal]
  - Renal disorder [Fatal]
  - Infected skin ulcer [Fatal]
  - Decubitus ulcer [Fatal]
  - Skin necrosis [Fatal]
  - Dehydration [Fatal]
  - Terminal state [Fatal]
  - Respiratory failure [Fatal]
  - Escherichia urinary tract infection [Fatal]
  - Pneumonia aspiration [Fatal]
  - Hypoglycaemia [Fatal]

NARRATIVE: CASE EVENT DATE: 201805
